FAERS Safety Report 9029712 (Version 1)
Quarter: 2013Q1

REPORT INFORMATION
  Report Type: Spontaneous
  Country: FR (occurrence: FR)
  Receive Date: 20130124
  Receipt Date: 20130124
  Transmission Date: 20140127
  Serious: Yes (Hospitalization)
  Sender: FDA-Public Use
  Company Number: FR-B.I. PHARMACEUTICALS,INC./RIDGEFIELD-2013-FF-00172FF

PATIENT
  Age: 77 Year
  Sex: Female

DRUGS (1)
  1. PRADAXA [Suspect]
     Indication: ARRHYTHMIA SUPRAVENTRICULAR
     Dosage: 220 MG
     Route: 048
     Dates: start: 20120928, end: 20121213

REACTIONS (2)
  - Peripheral ischaemia [Not Recovered/Not Resolved]
  - Drug ineffective [Not Recovered/Not Resolved]
